FAERS Safety Report 18280381 (Version 2)
Quarter: 2020Q4

REPORT INFORMATION
  Report Type: Spontaneous
  Country: AU (occurrence: AU)
  Receive Date: 20200918
  Receipt Date: 20201117
  Transmission Date: 20210113
  Serious: Yes (Hospitalization, Other)
  Sender: FDA-Public Use
  Company Number: AU-ALEXION-A202013225

PATIENT
  Age: 52 Year
  Sex: Female

DRUGS (7)
  1. SOLIRIS [Suspect]
     Active Substance: ECULIZUMAB
     Dosage: 1200 MG, Q2W
     Route: 065
  2. AZATHIOPRINE. [Concomitant]
     Active Substance: AZATHIOPRINE
     Indication: SYSTEMIC LUPUS ERYTHEMATOSUS
     Dosage: UNK
     Route: 065
  3. HYDROXYCHLOROQUINE [Concomitant]
     Active Substance: HYDROXYCHLOROQUINE
     Indication: SYSTEMIC LUPUS ERYTHEMATOSUS
     Dosage: UNK
     Route: 065
  4. RITUXIMAB. [Concomitant]
     Active Substance: RITUXIMAB
     Indication: MICROANGIOPATHIC HAEMOLYTIC ANAEMIA
     Dosage: UNK
     Route: 065
  5. PREDNISOLONE. [Concomitant]
     Active Substance: PREDNISOLONE
     Indication: MICROANGIOPATHIC HAEMOLYTIC ANAEMIA
     Dosage: UNK
     Route: 065
  6. SOLIRIS [Suspect]
     Active Substance: ECULIZUMAB
     Indication: ATYPICAL HAEMOLYTIC URAEMIC SYNDROME
     Dosage: 900 MG, UNK
     Route: 065
     Dates: start: 2018
  7. SULFASALAZINE. [Concomitant]
     Active Substance: SULFASALAZINE
     Indication: SYSTEMIC LUPUS ERYTHEMATOSUS
     Dosage: UNK
     Route: 065

REACTIONS (18)
  - Glomerulosclerosis [Not Recovered/Not Resolved]
  - Fibrin D dimer increased [Unknown]
  - Alanine aminotransferase increased [Unknown]
  - Pulmonary oedema [Unknown]
  - White blood cell count increased [Unknown]
  - Complement factor C4 decreased [Unknown]
  - Serum ferritin increased [Unknown]
  - Kidney fibrosis [Not Recovered/Not Resolved]
  - End stage renal disease [Not Recovered/Not Resolved]
  - Gene mutation [Unknown]
  - Total complement activity decreased [Unknown]
  - Infection in an immunocompromised host [Unknown]
  - White blood cell count decreased [Unknown]
  - Cardiomyopathy [Unknown]
  - Reticulocyte count increased [Unknown]
  - White blood cell morphology abnormal [Unknown]
  - Complement factor C4 increased [Unknown]
  - Blood albumin decreased [Unknown]

NARRATIVE: CASE EVENT DATE: 20180622
